FAERS Safety Report 13651892 (Version 2)
Quarter: 2017Q4

REPORT INFORMATION
  Report Type: Spontaneous
  Country: US (occurrence: US)
  Receive Date: 20170614
  Receipt Date: 20171017
  Transmission Date: 20180320
  Serious: Yes (Other)
  Sender: FDA-Public Use
  Company Number: US-ASTRAZENECA-2017SE60198

PATIENT
  Sex: Female
  Weight: 81.6 kg

DRUGS (7)
  1. LISINOPRIL. [Suspect]
     Active Substance: LISINOPRIL
     Dosage: 5.0MG UNKNOWN
     Route: 048
  2. GLUCOPHAGE [Concomitant]
     Active Substance: METFORMIN HYDROCHLORIDE
  3. OSCAL [Concomitant]
     Active Substance: CALCIUM CARBONATE
     Indication: BONE LOSS
  4. LISINOPRIL. [Suspect]
     Active Substance: LISINOPRIL
     Route: 048
  5. ASPIRIN. [Concomitant]
     Active Substance: ASPIRIN
     Dosage: EVERY DAY
  6. BYDUREON [Suspect]
     Active Substance: EXENATIDE
     Indication: TYPE 2 DIABETES MELLITUS
     Route: 058
     Dates: start: 201703, end: 20170618
  7. LIPITOR [Concomitant]
     Active Substance: ATORVASTATIN CALCIUM
     Indication: BLOOD CHOLESTEROL INCREASED
     Dosage: 40.0MG UNKNOWN

REACTIONS (7)
  - Injection site bruising [Unknown]
  - Wrong technique in product usage process [Unknown]
  - Hypotension [Unknown]
  - Injection site mass [Recovering/Resolving]
  - Injection site inflammation [Unknown]
  - Intestinal obstruction [Unknown]
  - Injection site pain [Unknown]
